FAERS Safety Report 12657694 (Version 3)
Quarter: 2017Q4

REPORT INFORMATION
  Report Type: Spontaneous
  Country: US (occurrence: US)
  Receive Date: 20160816
  Receipt Date: 20171127
  Transmission Date: 20180320
  Serious: Yes (Hospitalization, Other)
  Sender: FDA-Public Use
  Company Number: US-DSJP-DSU-2016-127039

PATIENT

DRUGS (3)
  1. BENICAR [Suspect]
     Active Substance: OLMESARTAN MEDOXOMIL
     Indication: HYPERTENSION
     Dosage: 40 MG, QD
     Route: 048
     Dates: start: 20080702, end: 20130901
  2. LISINOPRIL. [Concomitant]
     Active Substance: LISINOPRIL
     Indication: HYPERTENSION
     Dosage: 10 MG, QD
     Route: 048
  3. BENICAR [Suspect]
     Active Substance: OLMESARTAN MEDOXOMIL
     Dosage: 20 MG, UNK
     Dates: start: 20080702, end: 20130901

REACTIONS (21)
  - Hepatic failure [Unknown]
  - Immune system disorder [Recovered/Resolved]
  - Abdominal discomfort [Recovered/Resolved]
  - Hypersomnia [Unknown]
  - Vomiting [Unknown]
  - Euphoric mood [Recovered/Resolved]
  - Drug ineffective [Unknown]
  - Nausea [Recovered/Resolved]
  - Blood electrolytes decreased [Recovered/Resolved]
  - Heat stroke [Recovered/Resolved]
  - Malaise [Recovered/Resolved]
  - Diarrhoea [Recovered/Resolved]
  - Mental disorder [Not Recovered/Not Resolved]
  - Confusional state [Unknown]
  - Electrolyte imbalance [Recovered/Resolved]
  - Dizziness [Unknown]
  - Weight decreased [Recovered/Resolved]
  - Acute kidney injury [Recovering/Resolving]
  - Dehydration [Unknown]
  - Apparent death [Recovered/Resolved]
  - Headache [Unknown]

NARRATIVE: CASE EVENT DATE: 20090620
